FAERS Safety Report 15767034 (Version 1)
Quarter: 2018Q4

REPORT INFORMATION
  Report Type: Spontaneous
  Country: US (occurrence: US)
  Receive Date: 20181227
  Receipt Date: 20181227
  Transmission Date: 20190205
  Serious: Yes (Death, Other)
  Sender: FDA-Public Use
  Company Number: US-PFIZER INC-2018026345

PATIENT
  Age: 64 Year
  Sex: Male
  Weight: 75.3 kg

DRUGS (1)
  1. SOMAVERT [Suspect]
     Active Substance: PEGVISOMANT
     Indication: ACROMEGALY
     Dosage: 10 MG, DAILY
     Route: 058
     Dates: start: 201410

REACTIONS (1)
  - Neoplasm malignant [Fatal]

NARRATIVE: CASE EVENT DATE: 201812
